FAERS Safety Report 10148780 (Version 1)
Quarter: 2014Q2

REPORT INFORMATION
  Report Type: Report from Study
  Country: US (occurrence: US)
  Receive Date: 20140502
  Receipt Date: 20140502
  Transmission Date: 20141212
  Serious: Yes (Other)
  Sender: FDA-Public Use
  Company Number: US-ROCHE-1392634

PATIENT
  Age: 63 Year
  Sex: Female

DRUGS (1)
  1. LUCENTIS [Suspect]
     Indication: SWELLING
     Dosage: LEFT EYE
     Route: 050
     Dates: start: 20140304

REACTIONS (3)
  - Macular hole [Unknown]
  - Vitreous floaters [Recovered/Resolved]
  - Visual impairment [Not Recovered/Not Resolved]
